FAERS Safety Report 5740698-9 (Version None)
Quarter: 2008Q2

REPORT INFORMATION
  Report Type: 
  Country: None (occurrence: None)
  Receive Date: 20080516
  Receipt Date: 20080507
  Transmission Date: 20081010
  Serious: Yes (Life-Threatening, Hospitalization, Disabling)
  Sender: FDA-Public Use
  Company Number: JP-BRISTOL-MYERS SQUIBB COMPANY-14168074

PATIENT
  Sex: Male
  Weight: 55 kg

DRUGS (7)
  1. ABILIFY [Suspect]
     Indication: SCHIZOPHRENIA
     Dosage: RECEIVED 6MG TWICE DAILY FROM 06JUN07 TO 19JUN07. 12 MG AT BEDTIME 20-JUN-2007 TO 20-JUL-2007
     Route: 048
     Dates: start: 20070620, end: 20070720
  2. RISPERDAL [Concomitant]
     Dosage: UNKNOWN TO 05-JUN-2007 6MG/DAY
     Dates: start: 20070606
  3. ROHYPNOL [Concomitant]
     Dosage: 1 DOSAGE FORM=1 MG TABLET.
     Dates: start: 20070606, end: 20070720
  4. PANTOSIN [Concomitant]
     Dosage: 1 DOSAGE FORM=3 GRAM POWDER
     Dates: start: 20070620, end: 20070720
  5. MAGNESIUM OXIDE [Concomitant]
     Dosage: 1 DOSAGE FORM=1 GRAM POWDER
     Dates: start: 20070620, end: 20070720
  6. LEUCON [Concomitant]
     Dosage: 1 DOSAGE FORM = 1 TABLET. INCREASED TO 6TABS PER DAY.
  7. BIPERIDEN HYDROCHLORIDE TAB [Concomitant]
     Dates: end: 20070620

REACTIONS (4)
  - ACUTE RESPIRATORY DISTRESS SYNDROME [None]
  - PNEUMONIA ASPIRATION [None]
  - RESPIRATORY FAILURE [None]
  - STUPOR [None]
